FAERS Safety Report 7967293-5 (Version None)
Quarter: 2011Q4

REPORT INFORMATION
  Report Type: 
  Country: None (occurrence: None)
  Receive Date: 20111209
  Receipt Date: 20111202
  Transmission Date: 20120403
  Serious: Yes (Hospitalization)
  Sender: FDA-Public Use
  Company Number: US-ASTELLAS-2011US008167

PATIENT
  Sex: Female
  Weight: 73 kg

DRUGS (14)
  1. PRILOSEC [Concomitant]
     Indication: DYSPEPSIA
     Dosage: 20 MG, UID/QD
     Route: 048
     Dates: start: 20020913
  2. PREDNISONE [Concomitant]
     Indication: RENAL TRANSPLANT
     Dosage: 5 MG, 3XWEEKLY
     Route: 048
     Dates: start: 20020913
  3. IRON [Concomitant]
     Indication: BLOOD IRON DECREASED
     Dosage: 1 MG, UID/QD
     Route: 048
     Dates: start: 20020913
  4. FOLIC ACID [Concomitant]
     Indication: PRODUCT USED FOR UNKNOWN INDICATION
     Dosage: 1 MG, UID/QD
     Route: 048
     Dates: start: 20020913
  5. DOCUSATE [Concomitant]
     Indication: FAECES HARD
     Dosage: 100 MG, BID
     Route: 048
     Dates: start: 20020913
  6. SODIUM BICARBONATE [Concomitant]
     Indication: PRODUCT USED FOR UNKNOWN INDICATION
     Dosage: 650 MG, BID
     Route: 048
     Dates: start: 20020913
  7. PROGRAF [Suspect]
     Indication: RENAL TRANSPLANT
     Dosage: 3 MG, BID
     Route: 048
     Dates: start: 20020913
  8. CITALOPRAM [Concomitant]
     Indication: PRODUCT USED FOR UNKNOWN INDICATION
     Dosage: 40 MG, UID/QD
     Route: 048
     Dates: start: 20020913
  9. MYCOPHENOLATE MOFETIL (CELLCEPT) [Concomitant]
     Indication: RENAL TRANSPLANT
     Dosage: 250 MG, BID
     Route: 048
     Dates: start: 20020913
  10. XANAX [Concomitant]
     Indication: ANXIETY
     Dosage: 1 MG, UID/QD
     Route: 048
     Dates: start: 20020913
  11. CALCIUM +VIT D [Concomitant]
     Indication: BONE DISORDER
     Dosage: 500 MG, BID
     Route: 048
     Dates: start: 20020913
  12. CALCITRIOL [Concomitant]
     Indication: PRODUCT USED FOR UNKNOWN INDICATION
     Dosage: 25 MG, UID/QD
     Route: 048
     Dates: start: 20020913
  13. LASIX [Concomitant]
     Indication: FLUID OVERLOAD
     Dosage: 20 MG, BID
     Route: 048
     Dates: start: 20020913
  14. MULTI-VITAMINS [Concomitant]
     Indication: VITAMIN SUPPLEMENTATION
     Dosage: UNK
     Route: 048
     Dates: start: 20020913

REACTIONS (1)
  - JOINT ARTHROPLASTY [None]
